FAERS Safety Report 11824495 (Version 1)
Quarter: 2015Q4

REPORT INFORMATION
  Report Type: Other
  Country: GB (occurrence: GB)
  Receive Date: 20151210
  Receipt Date: 20151210
  Transmission Date: 20160305
  Serious: Yes (Disabling)
  Sender: FDA-Public Use
  Company Number: GB-MYLANLABS-2015M1043040

PATIENT

DRUGS (9)
  1. PREDNISOLONE. [Concomitant]
     Active Substance: PREDNISOLONE
     Dosage: 2 DF, QD
     Dates: start: 20150410
  2. TERBUTALINE [Concomitant]
     Active Substance: TERBUTALINE
     Dosage: 1 DF, UNK
     Route: 055
     Dates: start: 20150410
  3. BUDESONIDE. [Concomitant]
     Active Substance: BUDESONIDE
     Dosage: 1-2 PUFFS TWICE A DAY
     Route: 055
     Dates: start: 20150410
  4. INSTILLAGEL [Concomitant]
     Active Substance: CHLORHEXIDINE GLUCONATE\LIDOCAINE HYDROCHLORIDE
     Dosage: 2 PREFILLED DISPOSABLE INJECTION
     Dates: start: 20150410
  5. PARACETAMOL [Concomitant]
     Active Substance: ACETAMINOPHEN
     Dosage: 2 DF, QID
     Dates: start: 20150410
  6. HYDROCORTISONE. [Concomitant]
     Active Substance: HYDROCORTISONE
     Dosage: 1 DF, TID
     Dates: start: 20150923, end: 20150924
  7. LEVOTHYROXINE. [Concomitant]
     Active Substance: LEVOTHYROXINE
     Dosage: 1 DF, QD
     Dates: start: 20150410
  8. ATORVASTATIN [Suspect]
     Active Substance: ATORVASTATIN
     Dosage: UNK
     Dates: start: 20150923
  9. OMEPRAZOLE. [Concomitant]
     Active Substance: OMEPRAZOLE
     Dosage: 1 DF, QD
     Dates: start: 20150410

REACTIONS (2)
  - Balance disorder [Recovering/Resolving]
  - Pain in extremity [Recovering/Resolving]

NARRATIVE: CASE EVENT DATE: 20151118
